FAERS Safety Report 10234476 (Version 5)
Quarter: 2016Q3

REPORT INFORMATION
  Report Type: Spontaneous
  Country: CA (occurrence: CA)
  Receive Date: 20140613
  Receipt Date: 20160902
  Transmission Date: 20161109
  Serious: Yes (Other)
  Sender: FDA-Public Use
  Company Number: CA-ROCHE-1417834

PATIENT
  Sex: Female

DRUGS (3)
  1. XOLAIR [Suspect]
     Active Substance: OMALIZUMAB
     Indication: ASTHMA
     Route: 058
     Dates: start: 20140325
  2. XOLAIR [Suspect]
     Active Substance: OMALIZUMAB
     Route: 058
     Dates: start: 20150423
  3. XOLAIR [Suspect]
     Active Substance: OMALIZUMAB
     Route: 058
     Dates: start: 20160302

REACTIONS (8)
  - Dyspnoea [Unknown]
  - Malaise [Unknown]
  - Drug effect decreased [Unknown]
  - Asthma [Unknown]
  - Forced expiratory volume decreased [Unknown]
  - Sinusitis [Unknown]
  - Weight decreased [Unknown]
  - Middle insomnia [Unknown]
